FAERS Safety Report 8129607-5 (Version None)
Quarter: 2012Q1

REPORT INFORMATION
  Report Type: 
  Country: None (occurrence: None)
  Receive Date: 20120210
  Receipt Date: 20110216
  Transmission Date: 20120608
  Serious: Yes (Other)
  Sender: FDA-Public Use
  Company Number: CH-GLAXOSMITHKLINE-B0701130A

PATIENT
  Age: 37 Year
  Sex: Female

DRUGS (4)
  1. REVAXIS [Suspect]
     Indication: PROPHYLAXIS
     Dosage: .5ML PER DAY
     Route: 065
     Dates: start: 20101108, end: 20101108
  2. HAVRIX [Suspect]
     Indication: PROPHYLAXIS
     Dosage: 1ML PER DAY
     Route: 065
     Dates: start: 20101108, end: 20101108
  3. PRIORIX [Suspect]
     Indication: PROPHYLAXIS
     Dosage: .5ML PER DAY
     Route: 065
     Dates: start: 20101108, end: 20101108
  4. ATOVAQUONE [Suspect]
     Indication: PROPHYLAXIS
     Route: 065
     Dates: start: 20101130, end: 20101210

REACTIONS (3)
  - MATERNAL EXPOSURE DURING PREGNANCY [None]
  - MATERNAL EXPOSURE BEFORE PREGNANCY [None]
  - PREMATURE DELIVERY [None]
